FAERS Safety Report 12372615 (Version 3)
Quarter: 2016Q2

REPORT INFORMATION
  Report Type: Spontaneous
  Country: US (occurrence: US)
  Receive Date: 20160516
  Receipt Date: 20160621
  Transmission Date: 20160815
  Serious: Yes (Other)
  Sender: FDA-Public Use
  Company Number: US-TEVA-660670USA

PATIENT
  Age: 48 Year
  Sex: Male

DRUGS (9)
  1. FLUOROURACIL. [Suspect]
     Active Substance: FLUOROURACIL
     Indication: COLORECTAL CANCER METASTATIC
     Dosage: 2 GM/M^2; SECOND CYCLE. ON TWO SUBSEQUENT CYCLES
     Route: 042
  2. PALONOSETRON [Concomitant]
     Active Substance: PALONOSETRON
     Indication: NAUSEA
     Dosage: 30  MIN PRIOR TO CHEMOTHERAPY
     Route: 042
  3. PALONOSETRON [Concomitant]
     Active Substance: PALONOSETRON
     Indication: PROPHYLAXIS
  4. PALONOSETRON [Concomitant]
     Active Substance: PALONOSETRON
     Indication: VOMITING
  5. DENOSUMAB [Concomitant]
     Active Substance: DENOSUMAB
  6. FLUOROURACIL. [Suspect]
     Active Substance: FLUOROURACIL
     Dosage: 2.4 GM/M^2; FIRST CYCLE OF FOLFIRI
     Route: 042
     Dates: start: 201402
  7. LEUCOVORIN. [Concomitant]
     Active Substance: LEUCOVORIN
     Indication: COLORECTAL CANCER METASTATIC
     Dosage: FOLFIRI
     Dates: start: 201402
  8. BEVACIZUMAB [Concomitant]
     Active Substance: BEVACIZUMAB
     Indication: COLORECTAL CANCER METASTATIC
     Dates: start: 201402
  9. IRINOTECAN [Concomitant]
     Active Substance: IRINOTECAN
     Indication: COLORECTAL CANCER METASTATIC
     Dosage: FOLFIRI
     Dates: start: 201402

REACTIONS (1)
  - Cardiotoxicity [Recovered/Resolved]
